FAERS Safety Report 16692868 (Version 3)
Quarter: 2019Q3

REPORT INFORMATION
  Report Type: Report from Study
  Country: BR (occurrence: BR)
  Receive Date: 20190812
  Receipt Date: 20190910
  Transmission Date: 20191004
  Serious: Yes (Disabling, Other)
  Sender: FDA-Public Use
  Company Number: BR-JNJFOC-20160913420

PATIENT
  Age: 57 Year
  Sex: Female
  Weight: 60 kg

DRUGS (21)
  1. ARISTAB [Concomitant]
     Active Substance: ARIPIPRAZOLE
     Indication: PRODUCT USED FOR UNKNOWN INDICATION
     Route: 065
  2. DEPAKOTE [Concomitant]
     Active Substance: DIVALPROEX SODIUM
     Indication: PRODUCT USED FOR UNKNOWN INDICATION
     Route: 065
  3. INVEGA SUSTENNA [Suspect]
     Active Substance: PALIPERIDONE PALMITATE
     Route: 030
     Dates: start: 201805
  4. INVEGA SUSTENNA [Suspect]
     Active Substance: PALIPERIDONE PALMITATE
     Route: 030
  5. ZYPREXA [Concomitant]
     Active Substance: OLANZAPINE
     Route: 065
  6. INVEGA SUSTENNA [Suspect]
     Active Substance: PALIPERIDONE PALMITATE
     Route: 030
  7. INVEGA SUSTENNA [Suspect]
     Active Substance: PALIPERIDONE PALMITATE
     Route: 030
  8. TRILEPTAL [Concomitant]
     Active Substance: OXCARBAZEPINE
  9. OMEPRAZOLE. [Concomitant]
     Active Substance: OMEPRAZOLE
     Route: 065
  10. CABERGOLINE. [Concomitant]
     Active Substance: CABERGOLINE
  11. INVEGA SUSTENNA [Suspect]
     Active Substance: PALIPERIDONE PALMITATE
     Route: 030
  12. BIPERIDEN [Concomitant]
     Active Substance: BIPERIDEN
     Indication: PRODUCT USED FOR UNKNOWN INDICATION
     Route: 065
  13. CARBOLITIUM [Concomitant]
     Active Substance: LITHIUM CARBONATE
     Route: 065
  14. INVEGA SUSTENNA [Suspect]
     Active Substance: PALIPERIDONE PALMITATE
     Route: 030
  15. INVEGA SUSTENNA [Suspect]
     Active Substance: PALIPERIDONE PALMITATE
     Indication: SCHIZOPHRENIA
     Route: 030
     Dates: start: 20130606
  16. INVEGA SUSTENNA [Suspect]
     Active Substance: PALIPERIDONE PALMITATE
     Route: 030
  17. INVEGA SUSTENNA [Suspect]
     Active Substance: PALIPERIDONE PALMITATE
     Route: 030
  18. INVEGA SUSTENNA [Suspect]
     Active Substance: PALIPERIDONE PALMITATE
     Route: 030
     Dates: start: 20160530
  19. INVEGA SUSTENNA [Suspect]
     Active Substance: PALIPERIDONE PALMITATE
     Route: 030
  20. DIAZEPAM. [Concomitant]
     Active Substance: DIAZEPAM
  21. OLANZAPINE. [Concomitant]
     Active Substance: OLANZAPINE

REACTIONS (21)
  - Medication error [Unknown]
  - Hallucinations, mixed [Not Recovered/Not Resolved]
  - Hypothalamo-pituitary disorder [Unknown]
  - Drug ineffective [Not Recovered/Not Resolved]
  - Inappropriate schedule of product administration [Unknown]
  - Adrenal disorder [Unknown]
  - Tremor [Unknown]
  - Mental disorder [Unknown]
  - Cataract [Unknown]
  - Pituitary tumour benign [Unknown]
  - Delirium [Not Recovered/Not Resolved]
  - Logorrhoea [Unknown]
  - Vitamin D deficiency [Unknown]
  - Treatment noncompliance [Unknown]
  - Disability [Not Recovered/Not Resolved]
  - Bone marrow disorder [Unknown]
  - Delusion [Unknown]
  - Agitation [Not Recovered/Not Resolved]
  - Disturbance in social behaviour [Unknown]
  - Off label use [Unknown]
  - Product prescribing error [Unknown]

NARRATIVE: CASE EVENT DATE: 2016
